FAERS Safety Report 14548079 (Version 1)
Quarter: 2018Q1

REPORT INFORMATION
  Report Type: Spontaneous
  Country: CA (occurrence: CA)
  Receive Date: 20180219
  Receipt Date: 20180219
  Transmission Date: 20180509
  Serious: Yes (Hospitalization)
  Sender: FDA-Public Use
  Company Number: PHHY2018CA026829

PATIENT
  Age: 77 Year
  Sex: Female
  Weight: 74 kg

DRUGS (2)
  1. ZOMETA [Suspect]
     Active Substance: ZOLEDRONIC ACID
     Indication: CANCER PAIN
     Dosage: UNK UNK, QD (ONCE)
     Route: 042
  2. LETROZOLE. [Concomitant]
     Active Substance: LETROZOLE
     Indication: PRODUCT USED FOR UNKNOWN INDICATION
     Route: 065

REACTIONS (7)
  - Ocular discomfort [Recovering/Resolving]
  - Blepharitis [Recovering/Resolving]
  - Diplopia [Recovering/Resolving]
  - Disorder of orbit [Recovering/Resolving]
  - Photophobia [Recovering/Resolving]
  - Eyelid oedema [Recovering/Resolving]
  - Headache [Recovering/Resolving]
